FAERS Safety Report 7885323-6 (Version None)
Quarter: 2011Q4

REPORT INFORMATION
  Report Type: 
  Country: None (occurrence: None)
  Receive Date: 20111102
  Receipt Date: 20111027
  Transmission Date: 20120403
  Serious: Yes (Death)
  Sender: FDA-Public Use
  Company Number: -SANOFI-AVENTIS-2011SA071028

PATIENT
  Age: 64 Year
  Sex: Female

DRUGS (7)
  1. CRESTOR [Concomitant]
     Route: 048
     Dates: end: 20110916
  2. PLAVIX [Suspect]
     Indication: STENT PLACEMENT
     Route: 048
     Dates: start: 20110905, end: 20110916
  3. PLAVIX [Suspect]
     Route: 048
     Dates: start: 20110905, end: 20110916
  4. LASIX [Concomitant]
     Route: 048
     Dates: end: 20110916
  5. LANSOPRAZOLE [Concomitant]
     Route: 048
     Dates: end: 20110916
  6. ASPEGIC 325 [Concomitant]
     Route: 048
     Dates: end: 20110916
  7. INSULATARD NPH HUMAN [Concomitant]
     Route: 058
     Dates: end: 20110916

REACTIONS (1)
  - ACUTE PULMONARY OEDEMA [None]
